FAERS Safety Report 18399363 (Version 2)
Quarter: 2022Q2

REPORT INFORMATION
  Report Type: Other
  Country: CA (occurrence: CA)
  Receive Date: 20201019
  Receipt Date: 20220512
  Transmission Date: 20220721
  Serious: Yes (Hospitalization, Other)
  Sender: FDA-Public Use
  Company Number: CA-PFIZER INC-2020400871

PATIENT
  Age: 37 Year
  Sex: Female

DRUGS (13)
  1. SODIUM BICARBONATE [Suspect]
     Active Substance: SODIUM BICARBONATE
     Dosage: 1.25 ML, THREE TREATMENTS
     Route: 042
     Dates: end: 201905
  2. VITAMIN B COMPLEX [Suspect]
     Active Substance: CYANOCOBALAMIN\DEXPANTHENOL\NIACINAMIDE\PYRIDOXINE HYDROCHLORIDE\RIBOFLAVIN 5^-PHOSPHATE SODIUM\THIA
     Dosage: UNK
     Route: 042
     Dates: end: 201905
  3. HERBALS [Suspect]
     Active Substance: HERBALS
     Dosage: 600 MG
     Route: 048
     Dates: end: 201905
  4. XARELTO [Suspect]
     Active Substance: RIVAROXABAN
     Indication: Thrombosis prophylaxis
     Dosage: 15 MG, 1X/DAY
     Dates: start: 2014, end: 201902
  5. LEVOCARNITINE [Suspect]
     Active Substance: LEVOCARNITINE
     Dosage: UNK
     Route: 042
     Dates: end: 201905
  6. SELENIUM [Suspect]
     Active Substance: SELENIUM
     Dosage: UNK
     Route: 048
     Dates: end: 201905
  7. ACETYLCYSTEINE [Suspect]
     Active Substance: ACETYLCYSTEINE
     Dosage: UNK
     Route: 042
     Dates: end: 201905
  8. HERBALS [Suspect]
     Active Substance: HERBALS
     Dosage: UNK
     Dates: end: 201905
  9. ASCORBIC ACID [Suspect]
     Active Substance: ASCORBIC ACID
     Dosage: UNK
     Route: 042
     Dates: start: 201905
  10. COPPER [Suspect]
     Active Substance: COPPER
     Dosage: UNK
     Route: 048
     Dates: end: 201905
  11. ALPHA LIPOIC ACID [Concomitant]
     Active Substance: .ALPHA.-LIPOIC ACID
     Dosage: UNK
  12. MAGNESIUM [Concomitant]
     Active Substance: MAGNESIUM
     Dosage: UNK
     Route: 065
  13. VITAMIN K [Concomitant]
     Active Substance: PHYTONADIONE
     Dosage: 5 MG

REACTIONS (1)
  - Drug-induced liver injury [Recovering/Resolving]
